FAERS Safety Report 21211408 (Version 3)
Quarter: 2023Q2

REPORT INFORMATION
  Report Type: Report from Study
  Country: CA (occurrence: CA)
  Receive Date: 20220815
  Receipt Date: 20230629
  Transmission Date: 20230721
  Serious: Yes (Other)
  Sender: FDA-Public Use
  Company Number: CA-NOVARTISPH-NVSC2022CA183257

PATIENT
  Age: 75 Year
  Sex: Female

DRUGS (1)
  1. HYRIMOZ [Suspect]
     Active Substance: ADALIMUMAB-ADAZ
     Indication: Crohn^s disease
     Dosage: 40 MG (PRE FILLED PEN)
     Route: 058
     Dates: start: 20220301

REACTIONS (6)
  - Cataract [Unknown]
  - Faeces soft [Recovering/Resolving]
  - Arthralgia [Unknown]
  - Urinary tract infection [Recovered/Resolved]
  - Bronchitis [Unknown]
  - Cough [Unknown]

NARRATIVE: CASE EVENT DATE: 20220601
